FAERS Safety Report 25902445 (Version 2)
Quarter: 2025Q4

REPORT INFORMATION
  Report Type: Spontaneous
  Country: EU (occurrence: EU)
  Receive Date: 20251009
  Receipt Date: 20251013
  Transmission Date: 20260117
  Serious: Yes (Death, Life-Threatening, Hospitalization, Disabling, Other)
  Sender: PFIZER
  Company Number: EU-MLMSERVICE-20250929-PI660845-00270-2

PATIENT
  Age: 11 Year
  Sex: Female

DRUGS (8)
  1. METHOTREXATE SODIUM [Suspect]
     Active Substance: METHOTREXATE SODIUM
     Indication: B precursor type acute leukaemia
     Dosage: UNK
  2. CYTARABINE [Suspect]
     Active Substance: CYTARABINE
     Indication: B precursor type acute leukaemia
     Dosage: HIGH DOSE
     Route: 037
  3. PREDNISOLONE [Suspect]
     Active Substance: PREDNISOLONE
     Indication: B precursor type acute leukaemia
     Dosage: UNK
     Route: 037
  4. DEXAMETHASONE [Suspect]
     Active Substance: DEXAMETHASONE
     Indication: B precursor type acute leukaemia
     Dosage: FIVE-DAY COURSE OF DEXAMETHASONE
  5. DEXAMETHASONE [Suspect]
     Active Substance: DEXAMETHASONE
     Dosage: SYSTEMIC RE-INDUCTION CHEMOTHERAPY
  6. DEXAMETHASONE [Suspect]
     Active Substance: DEXAMETHASONE
     Dosage: 20 MG/M2, 1X/DAY, SECOND RE-INDUCTION COURSE
  7. VINCRISTINE [Suspect]
     Active Substance: VINCRISTINE
     Indication: B precursor type acute leukaemia
     Dosage: UNK
  8. PEGASPARGASE [Suspect]
     Active Substance: PEGASPARGASE
     Indication: B precursor type acute leukaemia
     Dosage: UNK

REACTIONS (14)
  - Pancytopenia [Fatal]
  - Leukoencephalopathy [Fatal]
  - Rhinocerebral mucormycosis [Fatal]
  - Carotid artery occlusion [Fatal]
  - Carotid artery thrombosis [Fatal]
  - Respiratory arrest [Fatal]
  - Basilar artery occlusion [Fatal]
  - Basilar artery thrombosis [Fatal]
  - Brain oedema [Fatal]
  - Cerebral infarction [Fatal]
  - Carotid artery stenosis [Fatal]
  - Cerebral artery occlusion [Fatal]
  - Cerebral artery thrombosis [Fatal]
  - Hypertension [Fatal]
